FAERS Safety Report 8552274-3 (Version None)
Quarter: 2012Q3

REPORT INFORMATION
  Report Type: 
  Country: None (occurrence: None)
  Receive Date: 20120723
  Receipt Date: 20120723
  Transmission Date: 20120928
  Serious: Yes (Disabling, Other)
  Sender: FDA-Public Use
  Company Number: None

PATIENT
  Sex: Female
  Weight: 54.4316 kg

DRUGS (2)
  1. METHYLPREDNISOLONE [Suspect]
     Indication: INFLUENZA
     Dosage: 4 MG DOSEPK
     Dates: start: 20120706, end: 20120712
  2. METHYLPREDNISOLONE [Suspect]
     Indication: NASOPHARYNGITIS
     Dosage: 4 MG DOSEPK
     Dates: start: 20120706, end: 20120712

REACTIONS (1)
  - DIPLOPIA [None]
